FAERS Safety Report 5155364-0 (Version None)
Quarter: 2006Q4

REPORT INFORMATION
  Report Type: 
  Country: None (occurrence: None)
  Receive Date: 20061114
  Receipt Date: 20061106
  Transmission Date: 20070319
  Serious: Yes (Other)
  Sender: FDA-Public Use
  Company Number: SPVI-2006-01540

PATIENT
  Sex: Male

DRUGS (2)
  1. CARBATROL [Suspect]
     Dosage: 800 MG 2XS DAILY
  2. KEPRA (LEVETIRACETAM) [Concomitant]

REACTIONS (1)
  - CONVULSION [None]
